FAERS Safety Report 8313547-2 (Version None)
Quarter: 2012Q2

REPORT INFORMATION
  Report Type: 
  Country: None (occurrence: None)
  Receive Date: 20120425
  Receipt Date: 20120425
  Transmission Date: 20120825
  Serious: Yes (Other)
  Sender: FDA-Public Use
  Company Number: None

PATIENT
  Age: 21 Year
  Sex: Male
  Weight: 72.5755 kg

DRUGS (1)
  1. FLUVOXAMINE MALEATE [Suspect]
     Indication: OBSESSIVE-COMPULSIVE DISORDER
     Dosage: 100 MG  IN MORNING, 3 AT NIGHT
     Dates: start: 20120106, end: 20120207

REACTIONS (6)
  - SUICIDAL IDEATION [None]
  - UNEVALUABLE EVENT [None]
  - ASTHENIA [None]
  - SUICIDAL BEHAVIOUR [None]
  - DECREASED APPETITE [None]
  - SOMNOLENCE [None]
